FAERS Safety Report 13960611 (Version 1)
Quarter: 2017Q3

REPORT INFORMATION
  Report Type: Spontaneous
  Country: US (occurrence: US)
  Receive Date: 20170912
  Receipt Date: 20170912
  Transmission Date: 20171128
  Serious: No
  Sender: FDA-Public Use
  Company Number: US-ALLERGAN-1702970US

PATIENT
  Age: 13 Year
  Sex: Female

DRUGS (1)
  1. LEXAPRO [Suspect]
     Active Substance: ESCITALOPRAM OXALATE
     Indication: ANXIETY
     Dosage: 5 MG, UNK

REACTIONS (4)
  - Mood swings [Unknown]
  - Mental disorder [Unknown]
  - Anxiety [Unknown]
  - Fatigue [Unknown]
